FAERS Safety Report 20648593 (Version 1)
Quarter: 2022Q1

REPORT INFORMATION
  Report Type: Spontaneous
  Country: US (occurrence: None)
  Receive Date: 20220328
  Receipt Date: 20220328
  Transmission Date: 20220423
  Serious: Yes (Other)
  Sender: FDA-Public Use
  Company Number: None

PATIENT
  Age: 41 Year
  Sex: Male
  Weight: 112.5 kg

DRUGS (6)
  1. AMOXICILLIN [Suspect]
     Active Substance: AMOXICILLIN
     Indication: Ear infection
     Dosage: FREQUENCY : EVERY 12 HOURS;?
     Route: 048
     Dates: start: 20220209, end: 20220212
  2. ARIPIPRAZOLE [Concomitant]
     Active Substance: ARIPIPRAZOLE
  3. Hydorxyzine pamoate [Concomitant]
  4. DULOXETINE [Concomitant]
     Active Substance: DULOXETINE
  5. VITAMIN C [Concomitant]
     Active Substance: ASCORBIC ACID
  6. Vitamin D plus fish oil [Concomitant]

REACTIONS (2)
  - Neuropathy peripheral [None]
  - Electric shock sensation [None]

NARRATIVE: CASE EVENT DATE: 20220209
